FAERS Safety Report 7402007-9 (Version None)
Quarter: 2011Q2

REPORT INFORMATION
  Report Type: 
  Country: None (occurrence: None)
  Receive Date: 20110408
  Receipt Date: 20110404
  Transmission Date: 20111010
  Serious: Yes (Other)
  Sender: FDA-Public Use
  Company Number: CH-PFIZER INC-CH-WYE-G06345010

PATIENT
  Age: 23 Year
  Sex: Male

DRUGS (8)
  1. FLAGYL [Suspect]
     Dosage: 500 MG, 3X/DAY
     Route: 048
     Dates: start: 20100523, end: 20100528
  2. NEXIUM [Suspect]
     Dosage: 40 MG, 1X/DAY
     Route: 048
     Dates: start: 20100523, end: 20100601
  3. TORADOL [Suspect]
     Dosage: 10 MG, 3X/DAY
     Route: 041
     Dates: start: 20100523, end: 20100601
  4. CLEXANE [Suspect]
     Dosage: 20 MG, 1X/DAY
     Route: 058
     Dates: start: 20100524, end: 20100528
  5. TAZOBAC [Suspect]
     Indication: PSEUDOMONAS INFECTION
  6. TAZOBAC [Suspect]
     Indication: ESCHERICHIA BACTERAEMIA
     Dosage: 4 G, 3X/DAY
     Route: 041
     Dates: start: 20100526, end: 20100529
  7. ROCEPHIN [Suspect]
     Dosage: 2 G, 1X/DAY
     Route: 041
     Dates: start: 20100523, end: 20100526
  8. DAFALGAN [Suspect]
     Dosage: 1 G, 4X/DAY
     Route: 048
     Dates: start: 20100523, end: 20100526

REACTIONS (5)
  - BLOOD AMYLASE INCREASED [None]
  - HEPATOCELLULAR INJURY [None]
  - LIPASE INCREASED [None]
  - HEPATITIS [None]
  - CHOLECYSTITIS [None]
